FAERS Safety Report 18309330 (Version 1)
Quarter: 2020Q3

REPORT INFORMATION
  Report Type: Spontaneous
  Country: FR (occurrence: FR)
  Receive Date: 20200924
  Receipt Date: 20200924
  Transmission Date: 20201103
  Serious: Yes (Other)
  Sender: FDA-Public Use
  Company Number: FR-GILEAD-2020-0470074

PATIENT
  Sex: Male

DRUGS (1)
  1. EVIPLERA [Suspect]
     Active Substance: EMTRICITABINE\RILPIVIRINE\TENOFOVIR DISOPROXIL FUMARATE
     Indication: HIV INFECTION
     Dosage: UNK
     Route: 065
     Dates: end: 201901

REACTIONS (8)
  - Varicocele [Unknown]
  - Intentional product misuse [Recovered/Resolved]
  - Basal cell carcinoma [Unknown]
  - Viral load increased [Unknown]
  - Inguinal hernia [Unknown]
  - Syphilis [Unknown]
  - Intentional product misuse [Recovered/Resolved]
  - Glaucoma [Unknown]

NARRATIVE: CASE EVENT DATE: 201406
